FAERS Safety Report 4427489-6 (Version None)
Quarter: 2004Q3

REPORT INFORMATION
  Report Type: 
  Country: None (occurrence: None)
  Receive Date: 20040812
  Receipt Date: 20040806
  Transmission Date: 20050211
  Serious: No
  Sender: FDA-Public Use
  Company Number: 2004219817US

PATIENT
  Age: 65 Year
  Sex: Female
  Weight: 86.2 kg

DRUGS (1)
  1. BEXTRA [Suspect]
     Dates: start: 20020728, end: 20030309

REACTIONS (1)
  - BLOOD PRESSURE INCREASED [None]
